FAERS Safety Report 20135290 (Version 1)
Quarter: 2021Q4

REPORT INFORMATION
  Report Type: Spontaneous
  Country: US (occurrence: None)
  Receive Date: 20211130
  Receipt Date: 20211130
  Transmission Date: 20220303
  Serious: Yes (Hospitalization)
  Sender: FDA-Public Use
  Company Number: None

PATIENT
  Age: 66 Year
  Sex: Male
  Weight: 82.44 kg

DRUGS (2)
  1. ABECMA [Suspect]
     Active Substance: IDECABTAGENE VICLEUCEL
     Indication: Plasma cell myeloma
     Route: 042
     Dates: start: 20210719, end: 20210719
  2. ABECMA [Concomitant]
     Active Substance: IDECABTAGENE VICLEUCEL
     Dates: start: 20210719, end: 20210719

REACTIONS (3)
  - Lymphocyte adoptive therapy [None]
  - Cytokine release syndrome [None]
  - Haemolysis [None]

NARRATIVE: CASE EVENT DATE: 20210723
